FAERS Safety Report 19268387 (Version 1)
Quarter: 2021Q2

REPORT INFORMATION
  Report Type: Spontaneous
  Country: US (occurrence: US)
  Receive Date: 20210517
  Receipt Date: 20210517
  Transmission Date: 20210717
  Serious: No
  Sender: FDA-Public Use
  Company Number: None

PATIENT
  Age: 83 Year
  Sex: Male
  Weight: 74.39 kg

DRUGS (1)
  1. CARBOPLATIN. [Suspect]
     Active Substance: CARBOPLATIN
     Indication: NON-SMALL CELL LUNG CANCER
     Dosage: ?          OTHER FREQUENCY:EVERY 3 WEEKS ;?
     Route: 011
     Dates: start: 20210320, end: 20210514

REACTIONS (3)
  - Malaise [None]
  - Lethargy [None]
  - Hyperhidrosis [None]

NARRATIVE: CASE EVENT DATE: 20210514
